FAERS Safety Report 21611116 (Version 2)
Quarter: 2023Q1

REPORT INFORMATION
  Report Type: Spontaneous
  Country: US (occurrence: US)
  Receive Date: 20221117
  Receipt Date: 20230227
  Transmission Date: 20230418
  Serious: Yes (Hospitalization)
  Sender: FDA-Public Use
  Company Number: US-SA-SAC20221111001798

PATIENT

DRUGS (2)
  1. ALDURAZYME [Suspect]
     Active Substance: LARONIDASE
     Indication: Mucopolysaccharidosis I
     Dosage: 34.8 MG, QW
     Route: 041
     Dates: start: 20200129
  2. ALDURAZYME [Suspect]
     Active Substance: LARONIDASE
     Dosage: 34.8 MG, QW
     Route: 041
     Dates: start: 20210202

REACTIONS (2)
  - Hernia [Recovering/Resolving]
  - Wrong technique in product usage process [Unknown]
